FAERS Safety Report 11119036 (Version 1)
Quarter: 2015Q2

REPORT INFORMATION
  Report Type: Spontaneous
  Country: US (occurrence: None)
  Receive Date: 20150515
  Receipt Date: 20150515
  Transmission Date: 20150821
  Serious: Yes (Life-Threatening, Hospitalization, Disabling, Other)
  Sender: FDA-Public Use
  Company Number: None

PATIENT
  Age: 40 Year
  Sex: Female
  Weight: 72.58 kg

DRUGS (6)
  1. WELLBUTRIN [Concomitant]
     Active Substance: BUPROPION HYDROCHLORIDE
  2. MELATONIN [Concomitant]
     Active Substance: MELATONIN
  3. ENAPRANIL [Concomitant]
  4. BRINTELLIX [Concomitant]
     Active Substance: VORTIOXETINE HYDROBROMIDE
  5. PHENTERMINE [Suspect]
     Active Substance: PHENTERMINE
     Indication: WEIGHT DECREASED
  6. ACIPHEX [Concomitant]
     Active Substance: RABEPRAZOLE SODIUM

REACTIONS (11)
  - Anxiety [None]
  - Nervousness [None]
  - Bipolar disorder [None]
  - Schizoaffective disorder [None]
  - Insomnia [None]
  - Impaired work ability [None]
  - Agitation [None]
  - Hallucinations, mixed [None]
  - Suicide attempt [None]
  - Delusion [None]
  - Mania [None]
